FAERS Safety Report 5916332-1 (Version None)
Quarter: 2008Q4

REPORT INFORMATION
  Report Type: 
  Country: None (occurrence: None)
  Receive Date: 20081013
  Receipt Date: 20081013
  Transmission Date: 20090506
  Serious: Yes (Hospitalization)
  Sender: FDA-Public Use
  Company Number: PHEH2000US01422

PATIENT
  Sex: Male
  Weight: 77.2 kg

DRUGS (1)
  1. MYCOPHENOLIC ACID [Suspect]
     Dosage: 720 MG, BID
     Route: 048
     Dates: start: 19990711

REACTIONS (1)
  - CONSTIPATION [None]
